FAERS Safety Report 26111794 (Version 2)
Quarter: 2025Q4

REPORT INFORMATION
  Report Type: Spontaneous
  Country: EU (occurrence: EU)
  Receive Date: 20251202
  Receipt Date: 20251210
  Transmission Date: 20260118
  Serious: Yes (Life-Threatening, Hospitalization)
  Sender: BAUSCH AND LOMB
  Company Number: EU-BAUSCH-BH-2025-021106

PATIENT
  Age: 14 Year
  Sex: Female

DRUGS (2)
  1. DILTIAZEM [Suspect]
     Active Substance: DILTIAZEM
     Indication: Product used for unknown indication
     Dosage: INGESTED 25 TABLETS
     Route: 048
  2. PERINDOPRIL [Suspect]
     Active Substance: PERINDOPRIL
     Indication: Product used for unknown indication
     Dosage: INGESTED 25 TABLETS
     Route: 048

REACTIONS (10)
  - Toxicity to various agents [Recovered/Resolved]
  - Somnolence [Unknown]
  - Hypotension [Unknown]
  - Bradycardia [Unknown]
  - Atrioventricular block second degree [Recovered/Resolved]
  - Vomiting [Unknown]
  - Intentional overdose [Unknown]
  - Balance disorder [Recovered/Resolved]
  - Gait disturbance [Recovered/Resolved]
  - Prescription drug used without a prescription [Unknown]
